FAERS Safety Report 6816834-X (Version None)
Quarter: 2010Q2

REPORT INFORMATION
  Report Type: 
  Country: None (occurrence: None)
  Receive Date: 20100630
  Receipt Date: 20100624
  Transmission Date: 20101027
  Serious: Yes (Death, Other)
  Sender: FDA-Public Use
  Company Number: 2010US002504

PATIENT
  Age: 76 Year
  Sex: Male

DRUGS (6)
  1. PROGRAF [Suspect]
     Indication: RENAL TRANSPLANT
     Dosage: 8 MG, /D;
     Dates: start: 20081101
  2. MYCOPHENOLATE (MOCOPHENOLATE MOFETIL) [Concomitant]
  3. PREDNISOLONE [Concomitant]
  4. TRIMETHOPRIM [Concomitant]
  5. VALGANCICLOVIR [Concomitant]
  6. FUROSEMIDE [Concomitant]

REACTIONS (2)
  - SEPSIS [None]
  - URINARY TRACT INFECTION [None]
